FAERS Safety Report 10982924 (Version 2)
Quarter: 2015Q2

REPORT INFORMATION
  Report Type: Spontaneous
  Country: US (occurrence: None)
  Receive Date: 20150401
  Receipt Date: 20150604
  Transmission Date: 20150821
  Serious: Yes (Other)
  Sender: FDA-Public Use
  Company Number: DEP_02605_2015

PATIENT
  Age: 56 Year
  Sex: Female
  Weight: 65.77 kg

DRUGS (12)
  1. ARMOUR THYROID [Concomitant]
     Active Substance: THYROID, PORCINE\THYROID, UNSPECIFIED
  2. ESTRADIOL TESTOSTERONE [Concomitant]
  3. LAZANDA [Suspect]
     Active Substance: FENTANYL CITRATE
     Indication: COMPLEX REGIONAL PAIN SYNDROME
     Route: 045
     Dates: start: 201502, end: 201503
  4. POTASSIUM CHLORIDE. [Concomitant]
     Active Substance: POTASSIUM CHLORIDE
  5. HEALTHY HAIR SKIN AND NAILS B COMPLEX / BIOTIN [Concomitant]
  6. PROGESTERONE. [Concomitant]
     Active Substance: PROGESTERONE
  7. LAZANDA [Suspect]
     Active Substance: FENTANYL CITRATE
     Indication: OFF LABEL USE
     Route: 045
     Dates: start: 201502, end: 201503
  8. LISINOPRIL. [Concomitant]
     Active Substance: LISINOPRIL
  9. OMEPRAZOLE. [Concomitant]
     Active Substance: OMEPRAZOLE
  10. VITAMIN D2 [Concomitant]
     Active Substance: ERGOCALCIFEROL
  11. AMITIZA [Concomitant]
     Active Substance: LUBIPROSTONE
  12. FENTANYL. [Concomitant]
     Active Substance: FENTANYL

REACTIONS (12)
  - Rhinorrhoea [None]
  - Lacrimation increased [None]
  - Agitation [None]
  - Vomiting [None]
  - Incorrect dose administered [None]
  - Feeling abnormal [None]
  - Diarrhoea [None]
  - Drug withdrawal syndrome [None]
  - Overdose [None]
  - Yawning [None]
  - Irritability [None]
  - Abdominal pain upper [None]

NARRATIVE: CASE EVENT DATE: 201502
